FAERS Safety Report 5800463-0 (Version None)
Quarter: 2008Q3

REPORT INFORMATION
  Report Type: 
  Country: None (occurrence: None)
  Receive Date: 20080703
  Receipt Date: 20080626
  Transmission Date: 20090109
  Serious: Yes (Other)
  Sender: FDA-Public Use
  Company Number: A0718647A

PATIENT
  Age: 9 Year
  Sex: Male

DRUGS (7)
  1. ADVAIR DISKUS 100/50 [Suspect]
     Indication: ASTHMA
     Dosage: 1PUFF TWICE PER DAY
     Route: 055
     Dates: start: 19991001
  2. ALBUTEROL [Concomitant]
  3. FLUTICASONE PROPIONATE [Concomitant]
  4. SINGULAIR [Concomitant]
  5. RESPAIRE [Concomitant]
  6. PREVACID [Concomitant]
  7. UNSPECIFIED MEDICATION [Concomitant]

REACTIONS (1)
  - VISUAL ACUITY REDUCED [None]
